FAERS Safety Report 24252792 (Version 2)
Quarter: 2024Q3

REPORT INFORMATION
  Report Type: Spontaneous
  Country: US (occurrence: US)
  Receive Date: 20240827
  Receipt Date: 20240830
  Transmission Date: 20241017
  Serious: No
  Sender: NOVARTIS
  Company Number: US-002147023-NVSC2024US172759

PATIENT
  Sex: Female
  Weight: 72.12 kg

DRUGS (1)
  1. LEQVIO [Suspect]
     Active Substance: INCLISIRAN SODIUM
     Indication: Low density lipoprotein increased
     Dosage: 284 MG (EVERY 6 MONTHS)
     Route: 058
     Dates: start: 20231230, end: 20240823

REACTIONS (1)
  - Injection site reaction [Recovered/Resolved]
